FAERS Safety Report 4934795-5 (Version None)
Quarter: 2006Q1

REPORT INFORMATION
  Report Type: 
  Country: None (occurrence: None)
  Receive Date: 20060307
  Receipt Date: 20050414
  Transmission Date: 20060701
  Serious: Yes (Hospitalization)
  Sender: FDA-Public Use
  Company Number: US-MERCK-0504USA02588

PATIENT
  Age: 49 Year
  Sex: Female

DRUGS (8)
  1. VIOXX [Suspect]
     Indication: BACK PAIN
     Route: 048
     Dates: start: 20030422, end: 20030722
  2. VIOXX [Suspect]
     Route: 048
  3. VICODIN [Concomitant]
     Route: 065
  4. BEXTRA [Concomitant]
     Route: 065
  5. CELEBREX [Concomitant]
     Route: 065
  6. VALIUM [Concomitant]
     Route: 065
  7. IBUPROFEN [Concomitant]
     Route: 065
  8. PROZAC [Concomitant]
     Route: 065

REACTIONS (4)
  - BACK PAIN [None]
  - MENTAL DISORDER [None]
  - RENAL DISORDER [None]
  - ULCER [None]
